FAERS Safety Report 4790505-6 (Version None)
Quarter: 2005Q3

REPORT INFORMATION
  Report Type: 
  Country: None (occurrence: None)
  Receive Date: 20050914
  Receipt Date: 20041230
  Transmission Date: 20060218
  Serious: Yes (Hospitalization)
  Sender: FDA-Public Use
  Company Number: 163-20785-05010001

PATIENT
  Age: 53 Year
  Sex: Male

DRUGS (9)
  1. THALIDOMIDE \ PLACEBO (50 MILLIGRAM, CAPSULES) [Suspect]
     Indication: COLORECTAL CANCER RECURRENT
     Dosage: 300 MG, QHS, ORAL
     Route: 048
     Dates: start: 20010126
  2. LIPITOR [Concomitant]
  3. SEREVENT [Concomitant]
  4. MAXZIDE [Concomitant]
  5. QVAR (BECLOMETASONE DIPROPIONATE) [Concomitant]
  6. EFFEXOR SLOW RELEASE (VENLAFAXINE HYDROCHLORIDE) [Concomitant]
  7. ZANTAC [Concomitant]
  8. PLAVIX [Concomitant]
  9. BETA BLOCKER (BETA BLOCKING AGENTS) [Concomitant]

REACTIONS (1)
  - ACUTE MYOCARDIAL INFARCTION [None]
